FAERS Safety Report 6314438-9 (Version None)
Quarter: 2009Q3

REPORT INFORMATION
  Report Type: 
  Country: None (occurrence: None)
  Receive Date: 20090819
  Receipt Date: 20090811
  Transmission Date: 20100115
  Serious: Yes (Death)
  Sender: FDA-Public Use
  Company Number: DE-ROCHE-650772

PATIENT
  Sex: Male

DRUGS (1)
  1. GANCICLOVIR SODIUM [Suspect]
     Indication: ANTIVIRAL PROPHYLAXIS
     Route: 065

REACTIONS (1)
  - CYTOMEGALOVIRUS INFECTION [None]
